FAERS Safety Report 21163851 (Version 1)
Quarter: 2022Q3

REPORT INFORMATION
  Report Type: Spontaneous
  Country: JP (occurrence: None)
  Receive Date: 20220803
  Receipt Date: 20220803
  Transmission Date: 20221026
  Serious: Yes (Other)
  Sender: FDA-Public Use
  Company Number: 2019SE42923

PATIENT
  Age: 67 Year
  Sex: Male
  Weight: 47.8 kg

DRUGS (1)
  1. IMFINZI [Suspect]
     Active Substance: DURVALUMAB
     Indication: Non-small cell lung cancer stage IIIA
     Route: 041

REACTIONS (2)
  - Radiation pneumonitis [Recovering/Resolving]
  - Radiation fibrosis - lung [Unknown]
